FAERS Safety Report 9454086 (Version 1)
Quarter: 2013Q3

REPORT INFORMATION
  Report Type: Spontaneous
  Country: US (occurrence: US)
  Receive Date: 20130812
  Receipt Date: 20130812
  Transmission Date: 20140515
  Serious: No
  Sender: FDA-Public Use
  Company Number: US-B.I. PHARMACEUTICALS,INC./RIDGEFIELD-2013-BI-22651BP

PATIENT
  Age: 75 Year
  Sex: Female

DRUGS (4)
  1. COMBIVENT [Suspect]
     Indication: CHRONIC OBSTRUCTIVE PULMONARY DISEASE
     Dosage: STRENGTH: 20 MCG / 100 MCG; DAILY DOSE: 80 MCG/ 400 MCG
     Route: 055
     Dates: start: 20130726
  2. COMBIVENT [Suspect]
     Indication: CHRONIC OBSTRUCTIVE PULMONARY DISEASE
     Dosage: STRENTH: 18 MCG/ 103 MCG, DAILY DOSE: 144 MCG/ 8200 MCG
     Route: 055
     Dates: start: 2011, end: 20130725
  3. CARTIA [Concomitant]
     Indication: PALPITATIONS
     Dosage: 180 MG
     Route: 048
     Dates: start: 2007
  4. ALEVE [Concomitant]
     Indication: SCIATICA
     Dosage: 220 MG
     Route: 048
     Dates: start: 201305

REACTIONS (5)
  - Throat irritation [Not Recovered/Not Resolved]
  - Dysuria [Not Recovered/Not Resolved]
  - Skin sensitisation [Not Recovered/Not Resolved]
  - Wheezing [Not Recovered/Not Resolved]
  - Constipation [Not Recovered/Not Resolved]
